FAERS Safety Report 9818270 (Version 1)
Quarter: 2014Q1

REPORT INFORMATION
  Report Type: Spontaneous
  Country: US (occurrence: None)
  Receive Date: 20140113
  Receipt Date: 20140113
  Transmission Date: 20141002
  Serious: Yes (Hospitalization)
  Sender: FDA-Public Use
  Company Number: None

PATIENT
  Sex: Male

DRUGS (11)
  1. ZYTIGA 250 MG JANSSEN BIOTECH [Suspect]
     Route: 048
     Dates: start: 20130710
  2. PLAVIX [Concomitant]
  3. ASPIRIN [Concomitant]
  4. PROTONIX [Concomitant]
  5. ATENOLOL [Concomitant]
  6. FLUOXETINE [Concomitant]
  7. ISOSORBIDE [Concomitant]
  8. LIPITOR [Concomitant]
  9. LUPRON [Concomitant]
  10. MAXZIDE [Concomitant]
  11. PREDNISONE [Concomitant]

REACTIONS (2)
  - Pneumonia [None]
  - Ulcer haemorrhage [None]
